FAERS Safety Report 4693585-1 (Version None)
Quarter: 2005Q2

REPORT INFORMATION
  Report Type: 
  Country: None (occurrence: None)
  Receive Date: 20050613
  Receipt Date: 20050510
  Transmission Date: 20051028
  Serious: No
  Sender: FDA-Public Use
  Company Number: 2005-01048

PATIENT
  Sex: Female

DRUGS (1)
  1. VELCADE [Suspect]
     Dosage: 1.90 MG
     Dates: start: 20050503, end: 20050505

REACTIONS (1)
  - THROMBOCYTOPENIA [None]
